FAERS Safety Report 5925894-X (Version None)
Quarter: 2008Q4

REPORT INFORMATION
  Report Type: 
  Country: None (occurrence: None)
  Receive Date: 20081021
  Receipt Date: 20081009
  Transmission Date: 20090506
  Serious: Yes (Hospitalization)
  Sender: FDA-Public Use
  Company Number: JP-PFIZER INC-2008082110

PATIENT
  Sex: Male
  Weight: 53 kg

DRUGS (5)
  1. GABAPEN [Suspect]
     Indication: POST HERPETIC NEURALGIA
     Route: 048
     Dates: start: 20080204, end: 20080324
  2. TEGRETOL [Suspect]
     Indication: POST HERPETIC NEURALGIA
     Route: 048
     Dates: start: 20080201, end: 20080313
  3. TRYPTANOL [Suspect]
     Route: 048
     Dates: start: 20080110, end: 20080324
  4. NORTRIPTYLINE HCL [Suspect]
     Route: 048
     Dates: start: 20080314, end: 20080319
  5. SUNRYTHM [Suspect]
     Route: 048
     Dates: start: 20080309, end: 20080324

REACTIONS (5)
  - ABDOMINAL PAIN [None]
  - ANOREXIA [None]
  - DIZZINESS [None]
  - DRUG ERUPTION [None]
  - ENTERITIS INFECTIOUS [None]
